FAERS Safety Report 7362282-6 (Version None)
Quarter: 2011Q1

REPORT INFORMATION
  Report Type: 
  Country: None (occurrence: None)
  Receive Date: 20110315
  Receipt Date: 20110315
  Transmission Date: 20110831
  Serious: Yes (Hospitalization)
  Sender: FDA-Public Use
  Company Number: None

PATIENT
  Age: 95 Year
  Sex: Female
  Weight: 64 kg

DRUGS (1)
  1. COZAAR [Suspect]

REACTIONS (2)
  - MYALGIA [None]
  - ASTHENIA [None]
